FAERS Safety Report 8438458-3 (Version None)
Quarter: 2012Q2

REPORT INFORMATION
  Report Type: 
  Country: None (occurrence: None)
  Receive Date: 20120615
  Receipt Date: 20120611
  Transmission Date: 20120825
  Serious: Yes (Hospitalization, Other)
  Sender: FDA-Public Use
  Company Number: US-AMGEN-USASP2012036334

PATIENT
  Sex: Female

DRUGS (5)
  1. PROLIA [Suspect]
     Indication: OSTEOPOROSIS POSTMENOPAUSAL
     Dates: start: 20120313
  2. ALLEGRA [Concomitant]
  3. ACETAMINOPHEN [Concomitant]
     Dosage: UNK
  4. CYMBALTA [Concomitant]
  5. ZANTAC [Concomitant]

REACTIONS (4)
  - LOSS OF CONSCIOUSNESS [None]
  - DIARRHOEA [None]
  - BACK PAIN [None]
  - DEHYDRATION [None]
